FAERS Safety Report 26057790 (Version 1)
Quarter: 2025Q4

REPORT INFORMATION
  Report Type: Report from Study
  Country: CO (occurrence: CO)
  Receive Date: 20251118
  Receipt Date: 20251118
  Transmission Date: 20260117
  Serious: Yes (Other)
  Sender: GILEAD
  Company Number: CO-GILEAD-2025-0736586

PATIENT
  Age: 42 Year
  Sex: Male

DRUGS (1)
  1. SOFOSBUVIR\VELPATASVIR [Suspect]
     Active Substance: SOFOSBUVIR\VELPATASVIR
     Indication: Hepatitis C
     Dosage: 500 MG, QD
     Route: 048
     Dates: start: 20251003

REACTIONS (4)
  - Dermatitis bullous [Unknown]
  - Gastritis [Unknown]
  - Pyrexia [Unknown]
  - Rash macular [Unknown]
